FAERS Safety Report 22531503 (Version 1)
Quarter: 2023Q2

REPORT INFORMATION
  Report Type: Spontaneous
  Country: NO (occurrence: NO)
  Receive Date: 20230607
  Receipt Date: 20230607
  Transmission Date: 20230722
  Serious: Yes (Other)
  Sender: FDA-Public Use
  Company Number: NO-BAYER-2023A076524

PATIENT
  Age: 55 Year
  Sex: Female

DRUGS (1)
  1. LEVONORGESTREL [Suspect]
     Active Substance: LEVONORGESTREL
     Dosage: UNK
     Route: 015
     Dates: start: 2005

REACTIONS (19)
  - Cervix carcinoma [None]
  - Cervix cancer metastatic [None]
  - Genital haemorrhage [None]
  - Back pain [None]
  - Dyspareunia [None]
  - Abdominal pain lower [Not Recovered/Not Resolved]
  - Alopecia [None]
  - Onychoclasis [None]
  - Immune system disorder [None]
  - Genital pain [None]
  - Feeding disorder [None]
  - Weight decreased [None]
  - Menopause [None]
  - Nausea [None]
  - Fatigue [None]
  - Diarrhoea [None]
  - Constipation [None]
  - Disturbance in attention [None]
  - Mood swings [None]

NARRATIVE: CASE EVENT DATE: 20070101
